FAERS Safety Report 9954293 (Version 1)
Quarter: 2014Q1

REPORT INFORMATION
  Report Type: Spontaneous
  Country: US (occurrence: US)
  Receive Date: 20140304
  Receipt Date: 20140304
  Transmission Date: 20141002
  Serious: No
  Sender: FDA-Public Use
  Company Number: US-AMGEN-USASP2013087084

PATIENT
  Age: 28 Year
  Sex: Male

DRUGS (3)
  1. ENBREL [Suspect]
     Indication: ANKYLOSING SPONDYLITIS
     Dosage: 50 MG, QWK
     Route: 058
     Dates: start: 2003
  2. ADVIL                              /00109201/ [Concomitant]
     Dosage: 200 MG, UNK
  3. TYLENOL                            /00020001/ [Concomitant]
     Dosage: 650 MG, UNK, TYLENOL 8 HR

REACTIONS (2)
  - Drug ineffective [Unknown]
  - Condition aggravated [Unknown]
